FAERS Safety Report 7385406-3 (Version None)
Quarter: 2011Q1

REPORT INFORMATION
  Report Type: 
  Country: None (occurrence: None)
  Receive Date: 20110330
  Receipt Date: 20110322
  Transmission Date: 20110831
  Serious: Yes (Life-Threatening, Hospitalization)
  Sender: FDA-Public Use
  Company Number: FR-RB-024624-11

PATIENT
  Age: 41 Year
  Sex: Male

DRUGS (1)
  1. SUBUTEX [Suspect]
     Indication: PRODUCT USED FOR UNKNOWN INDICATION
     Dosage: DOSING DETAILS UNKNOWN
     Route: 042

REACTIONS (4)
  - ENDOCARDITIS [None]
  - INTENTIONAL DRUG MISUSE [None]
  - GRANULOMA [None]
  - EMBOLISM ARTERIAL [None]
